FAERS Safety Report 20416134 (Version 1)
Quarter: 2022Q1

REPORT INFORMATION
  Report Type: Spontaneous
  Country: US (occurrence: None)
  Receive Date: 20220201
  Receipt Date: 20220201
  Transmission Date: 20220424
  Serious: No
  Sender: FDA-Public Use
  Company Number: None

PATIENT
  Sex: Female

DRUGS (1)
  1. HUMIRA [Suspect]
     Active Substance: ADALIMUMAB
     Indication: Rheumatoid arthritis
     Dosage: 40MGEVERY 14 DAYS SQ?
     Route: 058
     Dates: start: 20210805

REACTIONS (3)
  - Rheumatoid arthritis [None]
  - Loss of therapeutic response [None]
  - Condition aggravated [None]
